FAERS Safety Report 4281311-X (Version None)
Quarter: 2004Q1

REPORT INFORMATION
  Report Type: 
  Country: None (occurrence: None)
  Receive Date: 20040112
  Receipt Date: 20030320
  Transmission Date: 20041129
  Serious: Yes (Hospitalization, Other)
  Sender: FDA-Public Use
  Company Number: NSADSS2003013683

PATIENT
  Age: 69 Year
  Sex: Female
  Weight: 56.6996 kg

DRUGS (7)
  1. REOPRO [Suspect]
     Indication: ANGIOPLASTY
     Dosage: 14 MG, 1 IN 1 AS NECESSARY, INTRAVENOUS; , 1 IN 1 AS NECESSARY INTRAVENOUS
     Route: 042
     Dates: start: 20030306, end: 20030306
  2. REOPRO [Suspect]
     Indication: CORONARY ARTERY STENOSIS
     Dosage: 14 MG, 1 IN 1 AS NECESSARY, INTRAVENOUS; , 1 IN 1 AS NECESSARY INTRAVENOUS
     Route: 042
     Dates: start: 20030306, end: 20030306
  3. REOPRO [Suspect]
     Indication: ANGIOPLASTY
     Dosage: 14 MG, 1 IN 1 AS NECESSARY, INTRAVENOUS; , 1 IN 1 AS NECESSARY INTRAVENOUS
     Route: 042
     Dates: start: 20030116
  4. REOPRO [Suspect]
     Indication: CORONARY ARTERY STENOSIS
     Dosage: 14 MG, 1 IN 1 AS NECESSARY, INTRAVENOUS; , 1 IN 1 AS NECESSARY INTRAVENOUS
     Route: 042
     Dates: start: 20030116
  5. LABETALOL HCL [Concomitant]
  6. ASPIRIN [Concomitant]
  7. PREMARIN [Concomitant]

REACTIONS (2)
  - ANAPHYLACTIC REACTION [None]
  - DRUG EFFECT DECREASED [None]
